FAERS Safety Report 17000871 (Version 2)
Quarter: 2020Q1

REPORT INFORMATION
  Report Type: Spontaneous
  Country: US (occurrence: US)
  Receive Date: 20191106
  Receipt Date: 20200205
  Transmission Date: 20200409
  Serious: No
  Sender: FDA-Public Use
  Company Number: US-SA-2019SA299797

PATIENT
  Age: 46 Year
  Sex: Male

DRUGS (1)
  1. DUPIXENT [Suspect]
     Active Substance: DUPILUMAB
     Indication: DERMATITIS ATOPIC
     Dosage: 300 MG, QOW
     Route: 058
     Dates: start: 201910

REACTIONS (5)
  - Back disorder [Unknown]
  - Condition aggravated [Unknown]
  - Feeling hot [Unknown]
  - Constipation [Unknown]
  - Eye pruritus [Unknown]

NARRATIVE: CASE EVENT DATE: 201910
